FAERS Safety Report 8225316-2 (Version None)
Quarter: 2012Q1

REPORT INFORMATION
  Report Type: 
  Country: None (occurrence: None)
  Receive Date: 20120321
  Receipt Date: 20120313
  Transmission Date: 20120608
  Serious: Yes (Death, Hospitalization)
  Sender: FDA-Public Use
  Company Number: US-GLAXOSMITHKLINE-A0967201A

PATIENT
  Sex: Male

DRUGS (2)
  1. VOTRIENT [Suspect]
     Indication: RENAL CANCER
     Dosage: 200MG FOUR TIMES PER DAY
     Route: 048
     Dates: start: 20111201, end: 20120201
  2. AFINITOR [Concomitant]
     Indication: RENAL CANCER
     Dosage: 10MG PER DAY
     Route: 048
     Dates: start: 20120201

REACTIONS (8)
  - METASTASES TO CENTRAL NERVOUS SYSTEM [None]
  - METASTASES TO LUNG [None]
  - VOMITING [None]
  - COUGH [None]
  - DECREASED APPETITE [None]
  - DISEASE PROGRESSION [None]
  - DRUG ADMINISTRATION ERROR [None]
  - RENAL CANCER [None]
